FAERS Safety Report 13798152 (Version 1)
Quarter: 2017Q3

REPORT INFORMATION
  Report Type: Spontaneous
  Country: US (occurrence: US)
  Receive Date: 20170726
  Receipt Date: 20170726
  Transmission Date: 20171127
  Serious: Yes (Other)
  Sender: FDA-Public Use
  Company Number: None

PATIENT
  Age: 57 Year
  Sex: Female
  Weight: 99 kg

DRUGS (1)
  1. BUPRENORPHINE/NALOXONE [Suspect]
     Active Substance: BUPRENORPHINE\NALOXONE
     Indication: DRUG USE DISORDER
     Route: 060

REACTIONS (7)
  - Swollen tongue [None]
  - Glossodynia [None]
  - Tongue pruritus [None]
  - Throat irritation [None]
  - Therapy change [None]
  - Pharyngeal oedema [None]
  - Oropharyngeal pain [None]

NARRATIVE: CASE EVENT DATE: 20121004
